FAERS Safety Report 26060296 (Version 1)
Quarter: 2025Q4

REPORT INFORMATION
  Report Type: Spontaneous
  Country: JP (occurrence: JP)
  Receive Date: 20251118
  Receipt Date: 20251118
  Transmission Date: 20260117
  Serious: Yes (Other)
  Sender: TAIHO ONCOLOGY INC
  Company Number: JP-TAIHOP-2025-011518

PATIENT
  Age: 7 Decade
  Sex: Male

DRUGS (1)
  1. LONSURF [Suspect]
     Active Substance: TIPIRACIL HYDROCHLORIDE\TRIFLURIDINE
     Indication: Product used for unknown indication
     Dosage: DOSE, FREQUENCY, FORM STRENGTH, AND CURRENT CYCLE UNKNOWN.
     Route: 048

REACTIONS (2)
  - Encephalopathy [Recovered/Resolved]
  - Altered state of consciousness [Recovered/Resolved]
